FAERS Safety Report 13040931 (Version 1)
Quarter: 2016Q4

REPORT INFORMATION
  Report Type: Spontaneous
  Country: None (occurrence: CA)
  Receive Date: 20161219
  Receipt Date: 20161219
  Transmission Date: 20170207
  Serious: Yes (Other)
  Sender: FDA-Public Use
  Company Number: CA-CELLTRION INC.-2016CA013598

PATIENT

DRUGS (2)
  1. INFLECTRA [Suspect]
     Active Substance: INFLIXIMAB-DYYB
     Dosage: 600 MG, (EVERY 2,6 WEEKS, THEN EVERY 8 WEEKS FOR 12 MONTHS)
     Route: 065
  2. INFLECTRA [Suspect]
     Active Substance: INFLIXIMAB-DYYB
     Indication: COLITIS ULCERATIVE
     Dosage: 600 MG, (EVERY 2,6 WEEKS, THEN EVERY 8 WEEKS FOR 12 MONTHS)
     Route: 065
     Dates: start: 20161101, end: 20161101

REACTIONS (2)
  - Haematochezia [None]
  - Frequent bowel movements [None]
